FAERS Safety Report 9063132 (Version 1)
Quarter: 2013Q1

REPORT INFORMATION
  Report Type: Report from Study
  Country: US (occurrence: US)
  Receive Date: 20130131
  Receipt Date: 20130131
  Transmission Date: 20140127
  Serious: No
  Sender: FDA-Public Use
  Company Number: US-ABBOTT-12P-163-1009547-00

PATIENT
  Age: 69 Year
  Sex: Male
  Weight: 68.55 kg

DRUGS (1)
  1. HUMIRA [Suspect]

REACTIONS (2)
  - Tooth extraction [Recovering/Resolving]
  - Gingival infection [Not Recovered/Not Resolved]
